FAERS Safety Report 7098224-0 (Version None)
Quarter: 2010Q4

REPORT INFORMATION
  Report Type: 
  Country: None (occurrence: None)
  Receive Date: 20101112
  Receipt Date: 20101105
  Transmission Date: 20110411
  Serious: Yes (Hospitalization, Other)
  Sender: FDA-Public Use
  Company Number: US-PFIZER INC-2009209427

PATIENT
  Sex: Female
  Weight: 76.19 kg

DRUGS (9)
  1. LIPITOR [Suspect]
     Indication: BLOOD CHOLESTEROL INCREASED
     Dosage: 10 MG, 1X/DAY
     Route: 048
  2. SYNTHROID [Suspect]
     Indication: HYPERTHYROIDISM
     Dosage: UNK
  3. LOPRESSOR [Concomitant]
     Dosage: ONE-HALF, TWICE DAILY
  4. LEVOTHYROXINE [Concomitant]
     Dosage: UNK
  5. POTASSIUM CHLORIDE [Concomitant]
     Dosage: UNK
  6. LISINOPRIL [Concomitant]
     Dosage: TWICE DAILY
  7. METFORMIN [Concomitant]
     Indication: HYPERTENSION
     Dosage: UNK
  8. LOSARTAN [Concomitant]
     Dosage: UNK
  9. POTASSIUM CHLORIDE [Concomitant]
     Dosage: UNK

REACTIONS (10)
  - ALOPECIA [None]
  - ARTHRITIS [None]
  - BLADDER DISCOMFORT [None]
  - CAROTID ARTERY OCCLUSION [None]
  - HIGH DENSITY LIPOPROTEIN DECREASED [None]
  - MUSCLE SPASMS [None]
  - MYALGIA [None]
  - NOCTURIA [None]
  - RENAL IMPAIRMENT [None]
  - URINARY INCONTINENCE [None]
